FAERS Safety Report 24255289 (Version 1)
Quarter: 2024Q3

REPORT INFORMATION
  Report Type: Spontaneous
  Country: CA (occurrence: CA)
  Receive Date: 20240827
  Receipt Date: 20240827
  Transmission Date: 20241016
  Serious: Yes (Other)
  Sender: DAIICHI
  Company Number: CA-AstraZeneca-2024A190509

PATIENT
  Age: 55 Year
  Sex: Female

DRUGS (1)
  1. TRASTUZUMAB DERUXTECAN [Suspect]
     Active Substance: TRASTUZUMAB DERUXTECAN
     Indication: Breast cancer metastatic
     Dosage: 356 MG, ONCE EVERY 3 WK
     Route: 042

REACTIONS (2)
  - COVID-19 [Unknown]
  - Neutrophil count decreased [Unknown]
